FAERS Safety Report 8153826-5 (Version None)
Quarter: 2012Q1

REPORT INFORMATION
  Report Type: 
  Country: None (occurrence: None)
  Receive Date: 20120221
  Receipt Date: 20111004
  Transmission Date: 20120608
  Serious: Yes (Other)
  Sender: FDA-Public Use
  Company Number: TR-BAYER-2011-092071

PATIENT
  Age: 34 Year
  Sex: Female

DRUGS (9)
  1. NAPROXEN [Concomitant]
  2. INTERFERON BETA-1B [Suspect]
     Indication: MULTIPLE SCLEROSIS
     Dosage: 8 MIU, QOD
     Route: 058
  3. XANAX [Concomitant]
     Dosage: UNK
  4. PAROXETINE HCL [Concomitant]
  5. LIORESAL [Concomitant]
  6. BENEXOL B12 [Concomitant]
  7. BITERAL [Concomitant]
  8. INTERFERON BETA-1B [Suspect]
     Dosage: UNK
     Dates: start: 20111004
  9. NOOTROPIL [Concomitant]

REACTIONS (3)
  - BRUCELLOSIS [None]
  - HEPATIC ENZYME INCREASED [None]
  - SPLENOMEGALY [None]
